FAERS Safety Report 9011938 (Version 1)
Quarter: 2012Q4

REPORT INFORMATION
  Report Type: Spontaneous
  Country: TR (occurrence: None)
  Receive Date: 20121228
  Receipt Date: 20121228
  Transmission Date: 20130627
  Serious: Yes (Other)
  Sender: FDA-Public Use
  Company Number: FK201204129

PATIENT
  Age: 2 Year
  Sex: Male

DRUGS (5)
  1. CYTARABINE (CYTARABINE) [Suspect]
     Indication: ACUTE MYELOID LEUKAEMIA
     Route: 042
  2. CYTARABINE (CYTARABINE) [Suspect]
     Indication: ACUTE MYELOID LEUKAEMIA
  3. ETOPOSIDE (ETOPOSIDE) [Suspect]
     Indication: ACUTE MYELOID LEUKAEMIA
  4. CEFEPIME (CEFEPIME) [Suspect]
     Indication: FEBRILE NEUTROPENIA
  5. AMIKACIN (AMIKACIN) [Suspect]
     Indication: FEBRILE NEUTROPENIA

REACTIONS (11)
  - Status epilepticus [None]
  - Heart rate increased [None]
  - Agitation [None]
  - Staring [None]
  - Hallucination [None]
  - Blood pressure decreased [None]
  - Respiratory rate increased [None]
  - Platelet count decreased [None]
  - Haemoglobin decreased [None]
  - Neurotoxicity [None]
  - Febrile neutropenia [None]
